FAERS Safety Report 14858093 (Version 1)
Quarter: 2018Q2

REPORT INFORMATION
  Report Type: Spontaneous
  Country: US (occurrence: US)
  Receive Date: 20180508
  Receipt Date: 20180508
  Transmission Date: 20180711
  Serious: Yes (Other)
  Sender: FDA-Public Use
  Company Number: US-ASTELLAS-2018US020939

PATIENT
  Age: 71 Year
  Sex: Male

DRUGS (2)
  1. LOSARTAN. [Concomitant]
     Active Substance: LOSARTAN
     Indication: PRODUCT USED FOR UNKNOWN INDICATION
     Dosage: UNK UNK, UNKNOWN FREQ.
     Route: 065
  2. MYRBETRIQ [Suspect]
     Active Substance: MIRABEGRON
     Indication: PRODUCT USED FOR UNKNOWN INDICATION
     Route: 065
     Dates: start: 20180428

REACTIONS (8)
  - Walking aid user [Unknown]
  - Treatment noncompliance [Unknown]
  - Gait disturbance [Unknown]
  - Mobility decreased [Unknown]
  - Abnormal dreams [Unknown]
  - Drug intolerance [Unknown]
  - Rhinorrhoea [Unknown]
  - Dizziness [Unknown]
